FAERS Safety Report 25747769 (Version 1)
Quarter: 2025Q3

REPORT INFORMATION
  Report Type: Spontaneous
  Country: CN (occurrence: CN)
  Receive Date: 20250901
  Receipt Date: 20250901
  Transmission Date: 20251020
  Serious: Yes (Other)
  Sender: AMGEN
  Company Number: CN-AMGEN-CHNSP2025171970

PATIENT

DRUGS (1)
  1. EVOLOCUMAB [Suspect]
     Active Substance: EVOLOCUMAB
     Indication: Arteriosclerosis
     Route: 058

REACTIONS (5)
  - Anaphylactic reaction [Unknown]
  - Diabetes mellitus [Unknown]
  - Alanine aminotransferase increased [Unknown]
  - Myalgia [Unknown]
  - Injection site reaction [Unknown]
